FAERS Safety Report 6904679-1 (Version None)
Quarter: 2010Q3

REPORT INFORMATION
  Report Type: 
  Country: None (occurrence: None)
  Receive Date: 20100804
  Receipt Date: 20090704
  Transmission Date: 20110219
  Serious: No
  Sender: FDA-Public Use
  Company Number: US-PFIZER INC-2009212397

PATIENT
  Sex: Female

DRUGS (1)
  1. LYRICA [Suspect]
     Indication: ANXIETY

REACTIONS (8)
  - DISTURBANCE IN ATTENTION [None]
  - DIZZINESS [None]
  - DYSPHONIA [None]
  - EUPHORIC MOOD [None]
  - FEELING ABNORMAL [None]
  - HYPERSENSITIVITY [None]
  - PARAESTHESIA ORAL [None]
  - SOMNOLENCE [None]
